FAERS Safety Report 10415982 (Version 1)
Quarter: 2014Q3

REPORT INFORMATION
  Report Type: Spontaneous
  Country: US (occurrence: US)
  Receive Date: 20140828
  Receipt Date: 20140828
  Transmission Date: 20150326
  Serious: No
  Sender: FDA-Public Use
  Company Number: US-VERTEX PHARMACEUTICALS INC-2014-003565

PATIENT
  Sex: Female

DRUGS (1)
  1. KALYDECO [Suspect]
     Active Substance: IVACAFTOR
     Indication: CYSTIC FIBROSIS
     Dosage: 150 MG, UNK
     Route: 048
     Dates: start: 20140417

REACTIONS (2)
  - Rash papular [Unknown]
  - Rash pruritic [Unknown]
